FAERS Safety Report 7675796-6 (Version None)
Quarter: 2011Q3

REPORT INFORMATION
  Report Type: 
  Country: None (occurrence: None)
  Receive Date: 20110810
  Receipt Date: 20110801
  Transmission Date: 20111222
  Serious: Yes (Other)
  Sender: FDA-Public Use
  Company Number: US-ASTRAZENECA-2011SE35876

PATIENT
  Age: 62 Year
  Weight: 87.5 kg

DRUGS (8)
  1. CRESTOR [Suspect]
     Route: 048
     Dates: end: 20110418
  2. NAPROXEN SODIUM [Concomitant]
  3. PERCOCET [Concomitant]
     Dosage: 5/325 TWO TIMES PER DAY AS NEEDED
     Dates: start: 20110301
  4. VERAPAMIL [Concomitant]
  5. HYDRALAZINE HCL [Concomitant]
  6. ZEGERID [Concomitant]
  7. CRESTOR [Suspect]
     Route: 048
     Dates: start: 20110110, end: 20110413
  8. ASPIRIN [Concomitant]
     Dates: start: 20110113

REACTIONS (5)
  - MYALGIA [None]
  - MUSCULAR WEAKNESS [None]
  - MOBILITY DECREASED [None]
  - GAIT DISTURBANCE [None]
  - ARTHRALGIA [None]
